FAERS Safety Report 17663032 (Version 1)
Quarter: 2020Q2

REPORT INFORMATION
  Report Type: Spontaneous
  Country: US (occurrence: US)
  Receive Date: 20200413
  Receipt Date: 20200413
  Transmission Date: 20200713
  Serious: Yes (Hospitalization, Other)
  Sender: FDA-Public Use
  Company Number: US-ASTELLAS-2020US012996

PATIENT
  Age: 54 Year
  Sex: Female

DRUGS (3)
  1. MYCOPHENOLATE [Concomitant]
     Active Substance: MYCOPHENOLIC ACID
     Indication: RENAL TRANSPLANT
     Route: 048
  2. PREDNISONE. [Concomitant]
     Active Substance: PREDNISONE
     Indication: RENAL TRANSPLANT
     Route: 048
  3. TACROLIMUS. [Suspect]
     Active Substance: TACROLIMUS
     Indication: RENAL TRANSPLANT
     Dosage: UNK UNK, TWICE DAILY (1 MG QAM AND 2 MG QPM)
     Route: 048

REACTIONS (5)
  - Hemiplegia [Recovering/Resolving]
  - Phaeohyphomycotic brain abscess [Recovering/Resolving]
  - Oesophageal candidiasis [Unknown]
  - Cytomegalovirus viraemia [Unknown]
  - Encephalopathy [Recovering/Resolving]
